FAERS Safety Report 5018864-X (Version None)
Quarter: 2006Q2

REPORT INFORMATION
  Report Type: 
  Country: None (occurrence: None)
  Receive Date: 20060606
  Receipt Date: 20050804
  Transmission Date: 20061013
  Serious: Yes (Hospitalization, Other)
  Sender: FDA-Public Use
  Company Number: US-AVENTIS-200516109US

PATIENT
  Sex: Female
  Weight: 59.09 kg

DRUGS (10)
  1. TAXOTERE [Suspect]
     Indication: BREAST CANCER
     Dates: start: 20050330, end: 20050613
  2. AMBIEN [Suspect]
     Indication: INSOMNIA
  3. AMBIEN [Suspect]
     Route: 048
  4. AMBIEN [Suspect]
     Route: 048
  5. ADRIAMYCIN PFS [Concomitant]
     Indication: BREAST CANCER
     Dates: start: 20050309, end: 20050309
  6. ADRIAMYCIN PFS [Concomitant]
     Dates: start: 20050330, end: 20050613
  7. CYTOXAN [Concomitant]
     Indication: BREAST CANCER
     Dates: start: 20050309, end: 20050309
  8. CYTOXAN [Concomitant]
     Dates: start: 20050330, end: 20050613
  9. PROTONIX [Concomitant]
     Dosage: DOSE: UNKNOWN
  10. CLARINEX [Concomitant]
     Dosage: DOSE: UNKNOWN

REACTIONS (11)
  - ANOREXIA [None]
  - CLOSTRIDIUM COLITIS [None]
  - DEPRESSION [None]
  - DRUG DEPENDENCE [None]
  - DYSGEUSIA [None]
  - HEARING IMPAIRED [None]
  - INSOMNIA [None]
  - PARAESTHESIA [None]
  - PAROSMIA [None]
  - SEPTIC SHOCK [None]
  - WEIGHT DECREASED [None]
